FAERS Safety Report 24419683 (Version 2)
Quarter: 2024Q4

REPORT INFORMATION
  Report Type: Report from Study
  Country: US (occurrence: US)
  Receive Date: 20241010
  Receipt Date: 20241024
  Transmission Date: 20250115
  Serious: Yes (Hospitalization)
  Sender: JAZZ
  Company Number: US-JAZZ PHARMACEUTICALS-2024-US-017363

PATIENT
  Sex: Male

DRUGS (1)
  1. EPIDIOLEX [Suspect]
     Active Substance: CANNABIDIOL
     Indication: Lennox-Gastaut syndrome
     Dosage: 0.5ML BY MOUTH TWICE DAILY. WEEK 2: 1ML TWICE DAILY. WEEK 3 AND THEREAFTER: 1.5ML TWICE DAILY
     Route: 048
     Dates: start: 202008

REACTIONS (1)
  - Hospitalisation [Unknown]
